FAERS Safety Report 9715945 (Version 3)
Quarter: 2014Q1

REPORT INFORMATION
  Report Type: Spontaneous
  Country: US (occurrence: US)
  Receive Date: 20131127
  Receipt Date: 20140120
  Transmission Date: 20141002
  Serious: Yes (Other)
  Sender: FDA-Public Use
  Company Number: US-DRREDDYS-USA/USA/13/0033794

PATIENT
  Age: 58 Year
  Sex: Female
  Weight: 56.3 kg

DRUGS (8)
  1. LEVOFLOXACIN TABLETS 750 MG [Suspect]
     Indication: SINUSITIS
     Route: 048
     Dates: start: 20121212, end: 201212
  2. LEVOFLOXACIN TABLETS 750 MG [Suspect]
     Indication: UPPER RESPIRATORY TRACT INFECTION
     Route: 065
     Dates: start: 20131212
  3. LEVOFLOXACIN TABLETS 750 MG [Suspect]
     Indication: KIDNEY INFECTION
  4. PANTOPRAZOLE SODIUM DR TABLETS 20MG + 40MG [Concomitant]
     Indication: PRODUCT USED FOR UNKNOWN INDICATION
     Route: 065
  5. LIVALO [Concomitant]
     Indication: PRODUCT USED FOR UNKNOWN INDICATION
     Route: 065
  6. NEXIUM [Concomitant]
     Indication: PRODUCT USED FOR UNKNOWN INDICATION
     Route: 065
  7. PERCOCET [Concomitant]
     Indication: PRODUCT USED FOR UNKNOWN INDICATION
     Route: 065
  8. TRAZODONE [Concomitant]
     Indication: PRODUCT USED FOR UNKNOWN INDICATION
     Route: 065

REACTIONS (9)
  - Tendonitis [Not Recovered/Not Resolved]
  - Eye haemorrhage [Not Recovered/Not Resolved]
  - Rotator cuff repair [Unknown]
  - Eye operation [Unknown]
  - Retinal detachment [Unknown]
  - Rotator cuff syndrome [Not Recovered/Not Resolved]
  - Photopsia [Not Recovered/Not Resolved]
  - Neck pain [Not Recovered/Not Resolved]
  - Gait disturbance [Not Recovered/Not Resolved]
